FAERS Safety Report 10621491 (Version 2)
Quarter: 2014Q4

REPORT INFORMATION
  Report Type: Spontaneous
  Country: US (occurrence: None)
  Receive Date: 20141128
  Receipt Date: 20141229
  Transmission Date: 20150529
  Serious: Yes (Other)
  Sender: FDA-Public Use
  Company Number: 2014-US-015507

PATIENT
  Age: 55 Year
  Sex: Male
  Weight: 136.1 kg

DRUGS (2)
  1. XYREM [Suspect]
     Active Substance: SODIUM OXYBATE
     Indication: INSOMNIA
     Route: 048
     Dates: start: 201406, end: 2014
  2. EXFORGE (AMLODIPINE BESILATE, VALSARTAN) [Concomitant]

REACTIONS (3)
  - Off label use [None]
  - Intervertebral disc degeneration [None]
  - Intervertebral disc protrusion [None]

NARRATIVE: CASE EVENT DATE: 2014
